FAERS Safety Report 4452984-3 (Version None)
Quarter: 2004Q3

REPORT INFORMATION
  Report Type: 
  Country: None (occurrence: None)
  Receive Date: 20040916
  Receipt Date: 20040831
  Transmission Date: 20050211
  Serious: Yes (Hospitalization)
  Sender: FDA-Public Use
  Company Number: 181588

PATIENT
  Age: 42 Year
  Sex: Male
  Weight: 53.5244 kg

DRUGS (3)
  1. AVONEX [Suspect]
     Indication: MULTIPLE SCLEROSIS
     Dosage: 30 MCG QW IM
     Route: 030
     Dates: start: 19990313, end: 20030701
  2. AVONEX [Suspect]
     Indication: MULTIPLE SCLEROSIS
     Dosage: 30 MCG QW IM
     Route: 030
     Dates: start: 20030801
  3. BACLOFEN [Concomitant]

REACTIONS (8)
  - BRONCHITIS [None]
  - CELLULITIS [None]
  - DERMATITIS EXFOLIATIVE [None]
  - DRY SKIN [None]
  - GROIN PAIN [None]
  - HEADACHE [None]
  - NAUSEA [None]
  - PHOTOPHOBIA [None]
